FAERS Safety Report 10841226 (Version 1)
Quarter: 2015Q1

REPORT INFORMATION
  Report Type: Spontaneous
  Country: GB (occurrence: None)
  Receive Date: 20150218
  Receipt Date: 20150218
  Transmission Date: 20150721
  Serious: Yes (Other)
  Sender: FDA-Public Use
  Company Number: FK201500465

PATIENT
  Sex: Male

DRUGS (5)
  1. RANITIDINE [Concomitant]
     Active Substance: RANITIDINE\RANITIDINE HYDROCHLORIDE
  2. OXALIPLATIN 5MG/ML CONCENTRATE FOR SOLUTION FOR INFUSION (OXALIPLATIN) (OXALIPLATIN) [Suspect]
     Active Substance: OXALIPLATIN
     Indication: COLORECTAL CANCER
     Dates: start: 20141126
  3. APREPITANT. [Concomitant]
     Active Substance: APREPITANT
  4. FLUOROURACIL (FLUOROURACIL) (FLUOROURACIL) [Suspect]
     Active Substance: FLUOROURACIL
     Indication: COLORECTAL CANCER
     Route: 040
     Dates: start: 20141126
  5. BAXTER SODIUM CHLORIDE (SODIUM CHLORIDE) (SODIUM CHLORIDE) [Suspect]
     Active Substance: SODIUM CHLORIDE
     Indication: COLORECTAL CANCER
     Dates: start: 20141126

REACTIONS (12)
  - Headache [None]
  - Oral pain [None]
  - Cough [None]
  - Neuropathy peripheral [None]
  - Incorrect drug administration rate [None]
  - Fatigue [None]
  - Decreased appetite [None]
  - Malaise [None]
  - Infusion related reaction [None]
  - Neutrophil count decreased [None]
  - Mood swings [None]
  - White blood cell count decreased [None]

NARRATIVE: CASE EVENT DATE: 20150113
